FAERS Safety Report 14333936 (Version 3)
Quarter: 2018Q1

REPORT INFORMATION
  Report Type: Report from Study
  Country: FR (occurrence: FR)
  Receive Date: 20171228
  Receipt Date: 20180212
  Transmission Date: 20180509
  Serious: Yes (Hospitalization, Other)
  Sender: FDA-Public Use
  Company Number: FR-PFIZER INC-2017550875

PATIENT
  Age: 5 Year
  Sex: Male

DRUGS (7)
  1. PREDNISONE. [Suspect]
     Active Substance: PREDNISONE
     Indication: ACUTE LYMPHOCYTIC LEUKAEMIA
     Dosage: 47 MG, UNK
     Route: 042
     Dates: start: 20170120, end: 20170127
  2. VINCRISTINE SULFATE. [Suspect]
     Active Substance: VINCRISTINE SULFATE
     Indication: ACUTE LYMPHOCYTIC LEUKAEMIA
     Dosage: 1.2 MG, UNK
     Route: 042
     Dates: start: 20170127, end: 20170217
  3. METHYLPREDNISOLONE. [Suspect]
     Active Substance: METHYLPREDNISOLONE
     Indication: ACUTE LYMPHOCYTIC LEUKAEMIA
     Dosage: 112 MG, UNK
     Route: 042
     Dates: start: 20170120, end: 20170124
  4. METHOTREXATE SODIUM. [Suspect]
     Active Substance: METHOTREXATE SODIUM
     Indication: ACUTE LYMPHOCYTIC LEUKAEMIA
     Dosage: 12 MG, UNK
     Route: 037
     Dates: start: 20170120, end: 20170212
  5. PREDNISONE. [Suspect]
     Active Substance: PREDNISONE
     Dosage: 50 MG, UNK
     Route: 048
     Dates: start: 20170125, end: 20170126
  6. ONCASPAR [Suspect]
     Active Substance: PEGASPARGASE
     Indication: ACUTE LYMPHOCYTIC LEUKAEMIA
     Dosage: 975 IU, UNK
     Route: 042
     Dates: start: 20170131, end: 20170214
  7. DEXAMETHASONE. [Suspect]
     Active Substance: DEXAMETHASONE
     Indication: ACUTE LYMPHOCYTIC LEUKAEMIA
     Dosage: 5 MG, UNK
     Route: 048
     Dates: start: 20170127, end: 20170223

REACTIONS (1)
  - Pneumonia viral [Recovered/Resolved]

NARRATIVE: CASE EVENT DATE: 20170217
